FAERS Safety Report 7095168-5 (Version None)
Quarter: 2010Q4

REPORT INFORMATION
  Report Type: 
  Country: None (occurrence: None)
  Receive Date: 20101109
  Receipt Date: 20101109
  Transmission Date: 20110411
  Serious: Yes (Life-Threatening)
  Sender: FDA-Public Use
  Company Number: None

PATIENT
  Sex: Male
  Weight: 0.81 kg

DRUGS (1)
  1. SURVANTA [Suspect]
     Indication: RESPIRATORY DISTRESS
     Dosage: 0.81 ML ONCE INTRATRACHEAL
     Route: 039
     Dates: start: 20100913

REACTIONS (2)
  - RESPIRATORY DISTRESS [None]
  - SKIN DISCOLOURATION [None]
